FAERS Safety Report 13706975 (Version 2)
Quarter: 2017Q3

REPORT INFORMATION
  Report Type: Spontaneous
  Country: IL (occurrence: IL)
  Receive Date: 20170630
  Receipt Date: 20170710
  Transmission Date: 20171127
  Serious: Yes (Other)
  Sender: FDA-Public Use
  Company Number: IL-TEVA-782055ACC

PATIENT

DRUGS (1)
  1. ZOLEDRONIC ACID [Suspect]
     Active Substance: ZOLEDRONIC ACID
     Route: 042

REACTIONS (5)
  - Arthritis [Unknown]
  - Acute phase reaction [Unknown]
  - Peripheral ischaemia [Unknown]
  - Systemic scleroderma [Unknown]
  - Gangrene [Unknown]
